FAERS Safety Report 8380363-5 (Version None)
Quarter: 2012Q2

REPORT INFORMATION
  Report Type: 
  Country: None (occurrence: None)
  Receive Date: 20120523
  Receipt Date: 20120510
  Transmission Date: 20120825
  Serious: No
  Sender: FDA-Public Use
  Company Number: US-ASTRAZENECA-2012SE30643

PATIENT
  Age: 79 Year
  Sex: Female

DRUGS (1)
  1. PULMICORT FLEXHALER [Suspect]
     Dosage: TOTAL DAILY DOSAGE 2 PUFFS QAM
     Route: 055

REACTIONS (1)
  - BACK PAIN [None]
